FAERS Safety Report 9149650 (Version 2)
Quarter: 2013Q2

REPORT INFORMATION
  Report Type: Report from Study
  Country: US (occurrence: US)
  Receive Date: 20130308
  Receipt Date: 20130619
  Transmission Date: 20140414
  Serious: Yes (Other)
  Sender: FDA-Public Use
  Company Number: US-ABBOTT-13P-163-1055996-00

PATIENT
  Age: 57 Year
  Sex: Female
  Weight: 81.72 kg

DRUGS (2)
  1. HUMIRA PEN [Suspect]
     Indication: RHEUMATOID ARTHRITIS
     Route: 058
     Dates: start: 2010
  2. HYDROCODONE/ACETAMINOPHEN [Suspect]
     Indication: PAIN
     Dosage: TABLET STRENGTH = 5MG/500MG

REACTIONS (5)
  - Salivary gland enlargement [Recovered/Resolved]
  - Sialoadenitis [Recovered/Resolved]
  - Sialoadenitis [Recovered/Resolved]
  - Salivary gland enlargement [Recovered/Resolved]
  - Dry mouth [Recovered/Resolved]
